FAERS Safety Report 9170419 (Version 5)
Quarter: 2014Q2

REPORT INFORMATION
  Report Type: Report from Study
  Country: US (occurrence: US)
  Receive Date: 20130319
  Receipt Date: 20140512
  Transmission Date: 20141212
  Serious: Yes (Death, Life-Threatening, Hospitalization, Other)
  Sender: FDA-Public Use
  Company Number: US-BAYER-2013-032639

PATIENT
  Age: 78 Year
  Sex: Female

DRUGS (23)
  1. SORAFENIB (RAF KINASE INHIBITOR) [Suspect]
     Dosage: 400 MG, BID
     Dates: start: 20130128, end: 20130311
  2. SORAFENIB (RAF KINASE INHIBITOR) [Suspect]
     Dosage: UNK
     Dates: start: 20130318
  3. SORAFENIB (RAF KINASE INHIBITOR) [Suspect]
     Dosage: 200 MG DAILY
     Route: 048
     Dates: start: 20130423, end: 20130614
  4. AZACITIDINE [Suspect]
     Dosage: DAILY DOSE 75 MG/M2
     Route: 042
     Dates: start: 20130128, end: 20130207
  5. AZACITIDINE [Suspect]
     Dosage: DAILY DOSE 75 MG/M2
     Route: 042
     Dates: start: 20130304, end: 20130311
  6. AZACITIDINE [Suspect]
     Dosage: DAILY DOSE 50 MG/M2
     Route: 042
     Dates: start: 20130506, end: 20130512
  7. ZOCOR [Concomitant]
     Dosage: 20 MG, HS
  8. COREG [Concomitant]
     Dosage: 3.125 MG, BID
  9. LEVOTHYROXINE [Concomitant]
     Dosage: 75 MCG DAILY
  10. PREDNISONE [Concomitant]
     Dosage: 15 MG DAILY
  11. ACYCLOVIR [ACICLOVIR] [Concomitant]
     Dosage: 400 MG, BID
  12. LASIX [Concomitant]
     Dosage: 200 MG DAILY
  13. POTASSIUM [Concomitant]
     Dosage: 20 MBQ, BID
  14. LOSARTAN [Concomitant]
     Dosage: 100 MG DAILY
  15. OMEPRAZOLE [Concomitant]
  16. CIPROFLOXACIN [Concomitant]
     Dosage: 1 DF, BID
  17. VYTORIN [Concomitant]
     Dosage: 1 TABLET DAILY
  18. MAGNESIUM [Concomitant]
     Dosage: 500 MG, BID
  19. BETHANECHOL [Concomitant]
     Dosage: 10 MG, TID
  20. TRAMADOL [Concomitant]
     Dosage: 50 MG, PRN
  21. PULMICORT [Concomitant]
  22. BROVANA [Concomitant]
  23. SPIRIVA [Concomitant]

REACTIONS (7)
  - Pneumonia [Fatal]
  - Sepsis [None]
  - Septic shock [None]
  - Ischaemic cardiomyopathy [None]
  - Pneumonia [None]
  - Neutropenia [None]
  - Atrial fibrillation [None]
